FAERS Safety Report 7320135-3 (Version None)
Quarter: 2011Q1

REPORT INFORMATION
  Report Type: 
  Country: None (occurrence: None)
  Receive Date: 20110228
  Receipt Date: 20110221
  Transmission Date: 20110831
  Serious: Yes (Death, Hospitalization)
  Sender: FDA-Public Use
  Company Number: AT-CELGENEUS-009-C5013-08031100

PATIENT
  Sex: Male
  Weight: 78 kg

DRUGS (20)
  1. PREDNISONE [Suspect]
     Indication: MULTIPLE MYELOMA
     Dosage: 164 MILLIGRAM
     Route: 065
     Dates: start: 20070903, end: 20080320
  2. NEUPOGEN [Concomitant]
     Route: 058
     Dates: start: 20070801
  3. VELCADE [Concomitant]
     Indication: MULTIPLE MYELOMA
     Route: 065
     Dates: start: 20080321
  4. VELCADE [Concomitant]
     Route: 065
     Dates: start: 20080509
  5. ERYTHROPOETIN [Concomitant]
     Route: 065
     Dates: start: 20071203
  6. DEXAMETHASONE [Concomitant]
     Indication: MULTIPLE MYELOMA
     Route: 065
     Dates: start: 20080321
  7. THALIDOMIDE [Concomitant]
     Indication: MULTIPLE MYELOMA
     Route: 048
     Dates: start: 20080321, end: 20080606
  8. CC-5013 [Suspect]
     Indication: MULTIPLE MYELOMA
     Dosage: 5 MILLIGRAM
     Route: 048
     Dates: start: 20070903, end: 20080320
  9. NEUPOGEN [Concomitant]
     Indication: NEUTROPENIA
     Dosage: 30 MILLIGRAM
     Route: 058
     Dates: start: 20080404
  10. VELCADE [Concomitant]
     Route: 065
     Dates: start: 20080516
  11. DEXAMETHASONE [Concomitant]
     Route: 065
     Dates: start: 20080325
  12. DEXAMETHASONE [Concomitant]
     Route: 065
     Dates: start: 20080516
  13. DEXAMETHASONE [Concomitant]
     Route: 065
     Dates: start: 20080606
  14. THALIDOMIDE [Concomitant]
     Route: 065
  15. VELCADE [Concomitant]
     Route: 065
     Dates: start: 20080606
  16. PLACEBO FOR CC-5013 [Suspect]
     Indication: MULTIPLE MYELOMA
     Route: 048
  17. DEXAMETHASONE [Concomitant]
     Route: 065
     Dates: start: 20080509
  18. VELCADE [Concomitant]
     Route: 065
     Dates: start: 20080325
  19. MELPHALAN [Suspect]
     Indication: MULTIPLE MYELOMA
     Dosage: 8 MILLIGRAM
     Route: 065
     Dates: start: 20070903, end: 20080320
  20. DOXORUBICIN HCL [Concomitant]
     Indication: MULTIPLE MYELOMA
     Route: 065
     Dates: start: 20080321, end: 20080606

REACTIONS (2)
  - ACUTE MYELOID LEUKAEMIA [None]
  - BONE PAIN [None]
